FAERS Safety Report 6142265-4 (Version None)
Quarter: 2009Q2

REPORT INFORMATION
  Report Type: 
  Country: None (occurrence: None)
  Receive Date: 20090401
  Receipt Date: 20090401
  Transmission Date: 20091009
  Serious: No
  Sender: FDA-Public Use
  Company Number: None

PATIENT

DRUGS (1)
  1. TYLENOL W/ CODEINE NO. 3 [Suspect]

REACTIONS (4)
  - COORDINATION ABNORMAL [None]
  - DIZZINESS [None]
  - EUPHORIC MOOD [None]
  - WRONG TECHNIQUE IN DRUG USAGE PROCESS [None]
